FAERS Safety Report 7577890-7 (Version None)
Quarter: 2011Q2

REPORT INFORMATION
  Report Type: 
  Country: None (occurrence: None)
  Receive Date: 20110628
  Receipt Date: 20110620
  Transmission Date: 20111010
  Serious: Yes (Other)
  Sender: FDA-Public Use
  Company Number: PHHY2011JP55979

PATIENT
  Sex: Male

DRUGS (1)
  1. RITALIN [Suspect]
     Indication: NARCOLEPSY
     Dosage: UNK UKN, UNK
     Route: 048

REACTIONS (8)
  - MOVEMENT DISORDER [None]
  - HALLUCINATION, AUDITORY [None]
  - HALLUCINATION [None]
  - DEPRESSION [None]
  - AGGRESSION [None]
  - DECREASED ACTIVITY [None]
  - DECREASED APPETITE [None]
  - SOMNOLENCE [None]
